FAERS Safety Report 6842426-2 (Version None)
Quarter: 2010Q3

REPORT INFORMATION
  Report Type: 
  Country: None (occurrence: None)
  Receive Date: 20100714
  Receipt Date: 20070727
  Transmission Date: 20110219
  Serious: No
  Sender: FDA-Public Use
  Company Number: US-PFIZER INC-2007063027

PATIENT
  Sex: Female
  Weight: 162 kg

DRUGS (3)
  1. CHANTIX [Suspect]
     Indication: SMOKING CESSATION THERAPY
     Dates: start: 20070601
  2. DIAZIDE [Concomitant]
  3. LISINOPRIL [Concomitant]

REACTIONS (2)
  - DRUG DOSE OMISSION [None]
  - HYPERHIDROSIS [None]
